FAERS Safety Report 18217238 (Version 1)
Quarter: 2020Q3

REPORT INFORMATION
  Report Type: Spontaneous
  Country: US (occurrence: US)
  Receive Date: 20200831
  Receipt Date: 20200831
  Transmission Date: 20201103
  Serious: Yes (Hospitalization)
  Sender: FDA-Public Use
  Company Number: None

PATIENT
  Age: 69 Year
  Sex: Male

DRUGS (2)
  1. ENOXAPARIN (GENERIC) (ENOXAPARIN 120MG/0.8ML INJ, SYRINGE, 0.8ML) (GEN [Suspect]
     Active Substance: ENOXAPARIN SODIUM
     Indication: ATRIAL FIBRILLATION
     Route: 058
     Dates: start: 20200602, end: 20200626
  2. WARFARIN (WARFARIN NA (EXELAN) 5MG TAB) [Suspect]
     Active Substance: WARFARIN SODIUM
     Indication: ATRIAL FIBRILLATION
     Dates: start: 20140512

REACTIONS (4)
  - Vomiting [None]
  - Nausea [None]
  - Haemoperitoneum [None]
  - Haemorrhage [None]

NARRATIVE: CASE EVENT DATE: 20200610
